FAERS Safety Report 4506031-5 (Version None)
Quarter: 2004Q4

REPORT INFORMATION
  Report Type: 
  Country: None (occurrence: None)
  Receive Date: 20041025
  Receipt Date: 20031029
  Transmission Date: 20050328
  Serious: Yes (Hospitalization, Other)
  Sender: FDA-Public Use
  Company Number: US-JNJFOC-20030704511

PATIENT
  Age: 31 Year
  Sex: Male
  Weight: 75.7507 kg

DRUGS (4)
  1. REMICADE [Suspect]
     Indication: CROHN'S DISEASE
     Dosage: 400 MG, 1 IN 8 WEEK, INTRAVENOUS
     Route: 042
     Dates: start: 20030414
  2. REMICADE [Suspect]
  3. IMURAN [Concomitant]
  4. ZOLOFT [Concomitant]

REACTIONS (5)
  - BLOOD ALKALINE PHOSPHATASE INCREASED [None]
  - COUGH [None]
  - HEADACHE [None]
  - HISTOPLASMOSIS [None]
  - PHOTOPHOBIA [None]
